FAERS Safety Report 17812446 (Version 3)
Quarter: 2020Q3

REPORT INFORMATION
  Report Type: Spontaneous
  Country: DE (occurrence: DE)
  Receive Date: 20200521
  Receipt Date: 20200708
  Transmission Date: 20201102
  Serious: Yes (Death, Life-Threatening, Other)
  Sender: FDA-Public Use
  Company Number: DE-PFIZER INC-2020199473

PATIENT
  Age: 64 Year
  Sex: Male
  Weight: 68 kg

DRUGS (1)
  1. METHOTREXATE SODIUM. [Suspect]
     Active Substance: METHOTREXATE SODIUM
     Indication: POLYMYALGIA RHEUMATICA
     Dosage: 10 MG, WEEKLY
     Route: 048
     Dates: start: 201909, end: 202003

REACTIONS (20)
  - Acute kidney injury [Unknown]
  - Back pain [Unknown]
  - Disturbance in attention [Unknown]
  - Arthralgia [Unknown]
  - Pyrexia [Unknown]
  - General physical health deterioration [Unknown]
  - Febrile neutropenia [Unknown]
  - Oral pain [Unknown]
  - Inflammatory marker increased [Unknown]
  - Cheilitis [Unknown]
  - Off label use [Unknown]
  - Sinus tachycardia [Unknown]
  - Blood urea increased [Unknown]
  - Infection [Unknown]
  - Pancytopenia [Fatal]
  - Weight decreased [Unknown]
  - Oral discomfort [Unknown]
  - Product use in unapproved indication [Unknown]
  - Pain in extremity [Unknown]
  - Chills [Unknown]

NARRATIVE: CASE EVENT DATE: 201909
